FAERS Safety Report 5342843-6 (Version None)
Quarter: 2007Q2

REPORT INFORMATION
  Report Type: 
  Country: None (occurrence: None)
  Receive Date: 20070601
  Receipt Date: 20070523
  Transmission Date: 20071010
  Serious: Yes (Life-Threatening)
  Sender: FDA-Public Use
  Company Number: JP-PFIZER INC-2007042868

PATIENT
  Age: 76 Year
  Sex: Male

DRUGS (4)
  1. ALDACTONE [Suspect]
     Dosage: DAILY DOSE:50MG
     Dates: start: 20070508, end: 20070521
  2. SOLDACTONE [Suspect]
     Dosage: DAILY DOSE:200MG
     Route: 042
     Dates: start: 20070425, end: 20070507
  3. LASIX [Concomitant]
     Route: 048
     Dates: start: 20070502, end: 20070515
  4. PARIET [Concomitant]
     Route: 048
     Dates: start: 20070502, end: 20070515

REACTIONS (1)
  - TOXIC EPIDERMAL NECROLYSIS [None]
